FAERS Safety Report 8032409-1 (Version None)
Quarter: 2012Q1

REPORT INFORMATION
  Report Type: 
  Country: None (occurrence: None)
  Receive Date: 20120109
  Receipt Date: 20120109
  Transmission Date: 20120608
  Serious: Yes (Hospitalization)
  Sender: FDA-Public Use
  Company Number: None

PATIENT
  Age: 74 Year
  Sex: Male

DRUGS (1)
  1. PLAVIX [Suspect]
     Dosage: 1 DAILY
     Dates: start: 20110522

REACTIONS (3)
  - HAEMOGLOBIN DECREASED [None]
  - DYSPNOEA [None]
  - RED BLOOD CELL COUNT DECREASED [None]
